FAERS Safety Report 9735819 (Version 1)
Quarter: 2013Q4

REPORT INFORMATION
  Report Type: Spontaneous
  Country: US (occurrence: US)
  Receive Date: 20131206
  Receipt Date: 20131206
  Transmission Date: 20140711
  Serious: No
  Sender: FDA-Public Use
  Company Number: US-GILEAD-2009-0023702

PATIENT
  Sex: Female
  Weight: 54.43 kg

DRUGS (9)
  1. LETAIRIS [Suspect]
     Indication: PULMONARY ARTERIAL HYPERTENSION
     Route: 048
     Dates: start: 20081111
  2. LASIX [Concomitant]
  3. EVISTA [Concomitant]
  4. FERROUS SULFATE [Concomitant]
  5. NEXIUM [Concomitant]
  6. ASPIRIN [Concomitant]
  7. CLONAZEPAM [Concomitant]
  8. DARVOCET [Concomitant]
  9. POTASSIUM CHLORIDE [Concomitant]

REACTIONS (2)
  - Asthenia [Unknown]
  - Fatigue [Unknown]
